FAERS Safety Report 7581085-0 (Version None)
Quarter: 2011Q2

REPORT INFORMATION
  Report Type: 
  Country: None (occurrence: None)
  Receive Date: 20110629
  Receipt Date: 20110620
  Transmission Date: 20111010
  Serious: Yes (Hospitalization, Other)
  Sender: FDA-Public Use
  Company Number: US-ASTRAZENECA-2011SE37508

PATIENT
  Age: 58 Year
  Sex: Female

DRUGS (2)
  1. SYMBICORT [Suspect]
     Route: 055
  2. ATACAND HCT [Suspect]
     Route: 048

REACTIONS (3)
  - REHABILITATION THERAPY [None]
  - CEREBROVASCULAR ACCIDENT [None]
  - TRACHEOSTOMY [None]
